FAERS Safety Report 6294564-3 (Version None)
Quarter: 2009Q3

REPORT INFORMATION
  Report Type: 
  Country: None (occurrence: None)
  Receive Date: 20090803
  Receipt Date: 20090722
  Transmission Date: 20100115
  Serious: Yes (Hospitalization)
  Sender: FDA-Public Use
  Company Number: FR-PFIZER INC-2009243823

PATIENT
  Age: 62 Year

DRUGS (6)
  1. ZYVOXID [Suspect]
     Indication: STAPHYLOCOCCAL INFECTION
     Dosage: UNK
     Route: 048
     Dates: start: 20090324, end: 20090414
  2. FUCIDINE CAP [Suspect]
     Indication: STAPHYLOCOCCAL INFECTION
     Dosage: 500 MG PER DAY
     Route: 048
     Dates: start: 20090224, end: 20090414
  3. FUCIDINE CAP [Suspect]
     Dosage: UNK
     Route: 048
     Dates: start: 20090317, end: 20090414
  4. CRIXIVAN [Suspect]
     Indication: HIV INFECTION
     Dosage: UNK
     Route: 048
     Dates: end: 20090414
  5. NORVIR [Suspect]
     Indication: HIV INFECTION
     Dosage: UNK
     Route: 048
     Dates: end: 20090414
  6. TRUVADA [Suspect]
     Indication: HIV INFECTION
     Dosage: UNK
     Route: 048
     Dates: end: 20090414

REACTIONS (1)
  - JAUNDICE [None]
